FAERS Safety Report 4628644-2 (Version None)
Quarter: 2005Q2

REPORT INFORMATION
  Report Type: 
  Country: None (occurrence: None)
  Receive Date: 20050404
  Receipt Date: 20050318
  Transmission Date: 20051028
  Serious: Yes (Hospitalization)
  Sender: FDA-Public Use
  Company Number: 2004-CN-00387CN

PATIENT
  Age: 18 Month
  Sex: Female

DRUGS (1)
  1. MIRAPEX [Suspect]
     Dosage: (1.5 MG), PO
     Route: 048

REACTIONS (5)
  - ACCIDENTAL POISONING [None]
  - COMA [None]
  - HYPOTENSION [None]
  - PHARMACEUTICAL PRODUCT COMPLAINT [None]
  - VOMITING [None]
